FAERS Safety Report 15567988 (Version 1)
Quarter: 2018Q4

REPORT INFORMATION
  Report Type: Report from Study
  Country: US (occurrence: US)
  Receive Date: 20181030
  Receipt Date: 20181030
  Transmission Date: 20190205
  Serious: Yes (Other)
  Sender: FDA-Public Use
  Company Number: PHHY2018US137949

PATIENT
  Age: 47 Year
  Sex: Female

DRUGS (1)
  1. GILENYA [Suspect]
     Active Substance: FINGOLIMOD HYDROCHLORIDE
     Indication: MULTIPLE SCLEROSIS
     Dosage: UNK, QD
     Route: 048

REACTIONS (6)
  - High density lipoprotein increased [Unknown]
  - Lymphocyte count decreased [Unknown]
  - Seborrhoeic keratosis [Unknown]
  - Tinea pedis [Unknown]
  - Blood bilirubin increased [Unknown]
  - Solar lentigo [Unknown]

NARRATIVE: CASE EVENT DATE: 20160428
